FAERS Safety Report 7816943-2 (Version None)
Quarter: 2011Q4

REPORT INFORMATION
  Report Type: 
  Country: None (occurrence: None)
  Receive Date: 20111017
  Receipt Date: 20110930
  Transmission Date: 20120403
  Serious: Yes (Hospitalization)
  Sender: FDA-Public Use
  Company Number: US-BAYER-2011-009218

PATIENT
  Age: 17 Year
  Sex: Female
  Weight: 55.782 kg

DRUGS (2)
  1. YAZ [Suspect]
     Indication: CONTRACEPTION
     Dosage: UNK
     Route: 048
     Dates: start: 20080204, end: 20080222
  2. YAZ [Suspect]
     Indication: ACNE

REACTIONS (3)
  - CONVULSION [None]
  - INJURY [None]
  - PAIN [None]
